FAERS Safety Report 8392064-8 (Version None)
Quarter: 2012Q2

REPORT INFORMATION
  Report Type: 
  Country: None (occurrence: None)
  Receive Date: 20120529
  Receipt Date: 20120523
  Transmission Date: 20120825
  Serious: Yes (Death, Other)
  Sender: FDA-Public Use
  Company Number: JP-ROCHE-803169

PATIENT
  Age: 82 Year
  Sex: Female
  Weight: 34 kg

DRUGS (15)
  1. PREDNISOLONE [Suspect]
     Indication: PRODUCT USED FOR UNKNOWN INDICATION
     Route: 048
     Dates: start: 20051001, end: 20100707
  2. ADALAT CC [Concomitant]
     Route: 048
  3. PREDNISOLONE [Suspect]
  4. HUMIRA [Suspect]
     Indication: RHEUMATOID ARTHRITIS
     Route: 058
     Dates: start: 20100819, end: 20100903
  5. PREDNISOLONE [Suspect]
     Dates: start: 20100808, end: 20100830
  6. ENBREL [Suspect]
     Indication: RHEUMATOID ARTHRITIS
     Route: 058
     Dates: start: 20060101, end: 20100716
  7. RABEPRAZOLE SODIUM [Concomitant]
     Route: 048
     Dates: start: 20070201
  8. MAGNESIUM SULFATE [Concomitant]
     Route: 048
     Dates: start: 20070201
  9. METHOTREXATE [Concomitant]
     Dates: start: 20100710, end: 20100807
  10. METHOTREXATE [Concomitant]
     Indication: RHEUMATOID ARTHRITIS
     Route: 048
     Dates: start: 20070101, end: 20100709
  11. TRICHLORMETHIAZIDE [Concomitant]
     Route: 048
     Dates: start: 20070201
  12. ACTEMRA [Suspect]
     Indication: RHEUMATOID ARTHRITIS
     Route: 041
     Dates: start: 20101027, end: 20101027
  13. PREDNISOLONE [Suspect]
     Dates: start: 20100831, end: 20101002
  14. FOLIAMIN [Concomitant]
     Route: 048
     Dates: start: 20070201, end: 20100808
  15. SELBEX [Concomitant]
     Route: 048
     Dates: start: 20070201

REACTIONS (4)
  - STAPHYLOCOCCAL SEPSIS [None]
  - MITRAL VALVE INCOMPETENCE [None]
  - DILATATION ATRIAL [None]
  - TRICUSPID VALVE INCOMPETENCE [None]
